FAERS Safety Report 8951342 (Version 1)
Quarter: 2012Q4

REPORT INFORMATION
  Report Type: Spontaneous
  Country: SG (occurrence: None)
  Receive Date: 20121129
  Receipt Date: 20121129
  Transmission Date: 20130627
  Serious: Yes (Other)
  Sender: FDA-Public Use
  Company Number: SG-DEXPHARM-20121570

PATIENT

DRUGS (3)
  1. OMEPRAZOLE [Suspect]
  2. CLARITHROMYCIN [Suspect]
  3. AMOXICILLIN [Concomitant]

REACTIONS (2)
  - Drug interaction [None]
  - Myositis [None]
